FAERS Safety Report 7692150-1 (Version None)
Quarter: 2011Q3

REPORT INFORMATION
  Report Type: 
  Country: None (occurrence: None)
  Receive Date: 20110818
  Receipt Date: 20110809
  Transmission Date: 20111222
  Serious: Yes (Hospitalization, Other)
  Sender: FDA-Public Use
  Company Number: US-ASTRAZENECA-2010SE15277

PATIENT
  Age: 69 Year
  Sex: Female
  Weight: 79.4 kg

DRUGS (2)
  1. COZAAR [Concomitant]
  2. TOPROL-XL [Suspect]
     Indication: HYPERTENSION
     Route: 048
     Dates: start: 20080101

REACTIONS (10)
  - PAIN [None]
  - WEIGHT DECREASED [None]
  - POLLAKIURIA [None]
  - GENERALISED OEDEMA [None]
  - SLEEP DISORDER DUE TO GENERAL MEDICAL CONDITION, INSOMNIA TYPE [None]
  - SKIN EXFOLIATION [None]
  - MUSCULOSKELETAL DISCOMFORT [None]
  - MYALGIA [None]
  - HIP SURGERY [None]
  - URINE OUTPUT INCREASED [None]
